FAERS Safety Report 4503547-2 (Version None)
Quarter: 2004Q4

REPORT INFORMATION
  Report Type: 
  Country: None (occurrence: None)
  Receive Date: 20041112
  Receipt Date: 20041104
  Transmission Date: 20050328
  Serious: Yes (Hospitalization, Other)
  Sender: FDA-Public Use
  Company Number: 200410577BFR

PATIENT
  Sex: Male

DRUGS (2)
  1. CIPROFLOXACIN HCL [Suspect]
     Indication: DIARRHOEA INFECTIOUS
     Dosage: INTRAVENOUS
     Route: 042
  2. CIPROFLOXACIN HCL [Suspect]
     Indication: PYREXIA
     Dosage: INTRAVENOUS
     Route: 042

REACTIONS (7)
  - BALANCE DISORDER [None]
  - CONFUSIONAL STATE [None]
  - CONVULSION [None]
  - DIABETIC VASCULAR DISORDER [None]
  - MUSCULAR WEAKNESS [None]
  - PERIPHERAL PARALYSIS [None]
  - TREMOR [None]
